FAERS Safety Report 11059317 (Version 2)
Quarter: 2015Q2

REPORT INFORMATION
  Report Type: Report from Study
  Country: DE (occurrence: DE)
  Receive Date: 20150423
  Receipt Date: 20150423
  Transmission Date: 20150821
  Serious: Yes (Death, Life-Threatening, Hospitalization)
  Sender: FDA-Public Use
  Company Number: PHHO2015DE006765

PATIENT
  Sex: Female

DRUGS (7)
  1. CARBIMAZOL [Concomitant]
  2. CLEXANE T [Concomitant]
     Active Substance: ENOXAPARIN SODIUM
  3. CGS 20267 [Suspect]
     Active Substance: LETROZOLE
     Indication: BREAST CANCER
     Dosage: 2.5 MG, UNK
     Route: 048
     Dates: start: 20100423, end: 20110508
  4. BELOZOK [Concomitant]
     Active Substance: METOPROLOL SUCCINATE
  5. AQUAPHOR [Concomitant]
     Active Substance: PETROLATUM
  6. LEVOFLOXACIN. [Concomitant]
     Active Substance: LEVOFLOXACIN
  7. RAMIPRIL. [Concomitant]
     Active Substance: RAMIPRIL

REACTIONS (2)
  - Peripheral ischaemia [Recovered/Resolved with Sequelae]
  - Peripheral ischaemia [Fatal]

NARRATIVE: CASE EVENT DATE: 20110509
